FAERS Safety Report 17977341 (Version 1)
Quarter: 2020Q3

REPORT INFORMATION
  Report Type: Spontaneous
  Country: CN (occurrence: CN)
  Receive Date: 20200702
  Receipt Date: 20200702
  Transmission Date: 20201103
  Serious: Yes (Other)
  Sender: FDA-Public Use
  Company Number: CN-BAXTER-2020BAX013338

PATIENT
  Age: 48 Year
  Sex: Female
  Weight: 50 kg

DRUGS (8)
  1. ENDOXAN [Suspect]
     Active Substance: CYCLOPHOSPHAMIDE
     Dosage: FOURTH NEOADJUVANT CHEMOTHERAPY; CYCLOPHOSPHAMIDE 1G + NS 250ML
     Route: 041
     Dates: start: 20200529, end: 20200529
  2. 5% GLUCOSE  INJECTION [Suspect]
     Active Substance: DEXTROSE
     Indication: MEDICATION DILUTION
     Dosage: FIRST AND THIRD NEOADJUVANT CHEMOTHERAPY; PIRARUBICIN HYDROCHLORIDE + GS
     Route: 041
  3. PIRARUBICIN HYDROCHLORIDE [Suspect]
     Active Substance: PIRARUBICIN HYDROCHLORIDE
     Dosage: FOURTH NEOADJUVANT CHEMOTHERAPY; PIRARUBICIN HYDROCHLORIDE 80MG + GS 250ML
     Route: 041
     Dates: start: 20200529, end: 20200529
  4. 0.9% SODIUM CHLORIDE INJECTION [Suspect]
     Active Substance: SODIUM CHLORIDE
     Indication: MEDICATION DILUTION
     Dosage: FIRST TO THIRD NEOADJUVANT CHEMOTHERAPY; CYCLOPHOSPHAMIDE + NS
     Route: 041
  5. PIRARUBICIN HYDROCHLORIDE [Suspect]
     Active Substance: PIRARUBICIN HYDROCHLORIDE
     Indication: BREAST CANCER FEMALE
     Dosage: FIRST TO THIRD NEOADJUVANT CHEMOTHERAPY; PIRARUBICIN HYDROCHLORIDE + GS
     Route: 041
  6. ENDOXAN [Suspect]
     Active Substance: CYCLOPHOSPHAMIDE
     Indication: BREAST CANCER FEMALE
     Dosage: FIRST TO THIRD NEOADJUVANT CHEMOTHERAPY; CYCLOPHOSPHAMIDE + NS
     Route: 041
  7. 0.9% SODIUM CHLORIDE INJECTION [Suspect]
     Active Substance: SODIUM CHLORIDE
     Dosage: FOURTH NEOADJUVANT CHEMOTHERAPY; CYCLOPHOSPHAMIDE 1 G + NS 250 ML
     Route: 041
     Dates: start: 20200529, end: 20200529
  8. 5% GLUCOSE  INJECTION [Suspect]
     Active Substance: DEXTROSE
     Dosage: FOURTH NEOADJUVANT CHEMOTHERAPY; PIRARUBICIN HYDROCHLORIDE 80 MG + GS 250 ML
     Route: 041
     Dates: start: 20200529, end: 20200529

REACTIONS (2)
  - Nausea [Recovering/Resolving]
  - Vomiting [Recovering/Resolving]

NARRATIVE: CASE EVENT DATE: 20200530
